FAERS Safety Report 12389861 (Version 1)
Quarter: 2016Q2

REPORT INFORMATION
  Report Type: Spontaneous
  Country: DK (occurrence: SI)
  Receive Date: 20160520
  Receipt Date: 20160520
  Transmission Date: 20160815
  Serious: Yes (Life-Threatening)
  Sender: FDA-Public Use
  Company Number: SI-FRI-1000084621

PATIENT
  Sex: Male

DRUGS (2)
  1. ESCITALOPRAM [Suspect]
     Active Substance: ESCITALOPRAM OXALATE
     Indication: DEPRESSION
     Dosage: 1 DF
     Route: 048
  2. INSULIN [Concomitant]
     Active Substance: INSULIN NOS
     Indication: PRODUCT USED FOR UNKNOWN INDICATION
     Route: 065

REACTIONS (4)
  - Altered state of consciousness [Not Recovered/Not Resolved]
  - Cheyne-Stokes respiration [Recovered/Resolved]
  - Epilepsy [Recovered/Resolved]
  - Hyponatraemia [Recovered/Resolved]
